FAERS Safety Report 5602028-2 (Version None)
Quarter: 2008Q1

REPORT INFORMATION
  Report Type: 
  Country: None (occurrence: None)
  Receive Date: 20080122
  Receipt Date: 20080122
  Transmission Date: 20080703
  Serious: Yes (Life-Threatening)
  Sender: FDA-Public Use
  Company Number: None

PATIENT
  Age: 77 Year
  Sex: Male
  Weight: 102 kg

DRUGS (1)
  1. HEPARIN [Suspect]
     Indication: CORONARY ARTERY BYPASS
     Dosage: 30,000 UNITS ONE TIME IV BOLUS  : 10,000 UNITS ONE TIME FOLLOWUP IV BOLUS
     Route: 040
     Dates: start: 20080103, end: 20080103

REACTIONS (3)
  - BLOOD PRESSURE DECREASED [None]
  - COAGULATION TIME PROLONGED [None]
  - PHARMACEUTICAL PRODUCT COMPLAINT [None]
